FAERS Safety Report 6462269-1 (Version None)
Quarter: 2009Q4

REPORT INFORMATION
  Report Type: 
  Country: None (occurrence: None)
  Receive Date: 20091130
  Receipt Date: 20091021
  Transmission Date: 20100525
  Serious: No
  Sender: FDA-Public Use
  Company Number: US-BAYER-200937085NA

PATIENT
  Age: 30 Year
  Sex: Female
  Weight: 54 kg

DRUGS (1)
  1. ULTRAVIST (PHARMACY BULK) [Suspect]
     Indication: UROGRAM
     Dosage: TOTAL DAILY DOSE: 125 ML  UNIT DOSE: 500 ML
     Route: 042

REACTIONS (3)
  - CHEST DISCOMFORT [None]
  - NASAL CONGESTION [None]
  - SNEEZING [None]
